FAERS Safety Report 10368357 (Version 1)
Quarter: 2014Q3

REPORT INFORMATION
  Report Type: Spontaneous
  Country: PT (occurrence: PT)
  Receive Date: 20140807
  Receipt Date: 20140807
  Transmission Date: 20150326
  Serious: Yes (Death, Other)
  Sender: FDA-Public Use
  Company Number: PT-CELGENEUS-130-21880-14075064

PATIENT

DRUGS (1)
  1. REVLIMID [Suspect]
     Active Substance: LENALIDOMIDE
     Indication: PLASMA CELL MYELOMA
     Route: 048
     Dates: start: 200705, end: 201209

REACTIONS (20)
  - Cerebrovascular accident [Unknown]
  - Thrombocytopenia [Unknown]
  - Myalgia [Unknown]
  - Pneumonia [Unknown]
  - Bone marrow failure [Unknown]
  - Neutropenia [Unknown]
  - Death [Fatal]
  - Pancytopenia [Unknown]
  - Fatigue [Unknown]
  - Plasma cell myeloma [Unknown]
  - Myocardial infarction [Unknown]
  - Skin reaction [Unknown]
  - Pulmonary embolism [Unknown]
  - Renal failure [Unknown]
  - Venous thrombosis [Unknown]
  - Neuropathy peripheral [Unknown]
  - Deep vein thrombosis [Unknown]
  - Hyperglycaemia [Unknown]
  - Anaemia [Unknown]
  - Gastrointestinal disorder [Unknown]
